FAERS Safety Report 23786982 (Version 2)
Quarter: 2024Q4

REPORT INFORMATION
  Report Type: Spontaneous
  Country: CN (occurrence: CN)
  Receive Date: 20240426
  Receipt Date: 20241013
  Transmission Date: 20250115
  Serious: Yes (Other)
  Sender: BAUSCH AND LOMB
  Company Number: CN-BAUSCHBL-2024BNL025973

PATIENT
  Age: 55 Year
  Sex: Female

DRUGS (1)
  1. CARTEOLOL HYDROCHLORIDE [Suspect]
     Active Substance: CARTEOLOL HYDROCHLORIDE
     Indication: Ocular hypertension
     Dosage: 1 GTT, BID
     Route: 047
     Dates: start: 20240407, end: 20240409

REACTIONS (1)
  - Bradycardia [Recovering/Resolving]

NARRATIVE: CASE EVENT DATE: 20240409
